FAERS Safety Report 21074183 (Version 5)
Quarter: 2022Q3

REPORT INFORMATION
  Report Type: Report from Study
  Country: CN (occurrence: CN)
  Receive Date: 20220713
  Receipt Date: 20220928
  Transmission Date: 20221027
  Serious: Yes (Hospitalization, Other)
  Sender: FDA-Public Use
  Company Number: CN-BoehringerIngelheim-2022-BI-177120

PATIENT
  Age: 66 Year
  Sex: Female
  Weight: 66 kg

DRUGS (18)
  1. ALTEPLASE [Suspect]
     Active Substance: ALTEPLASE
     Indication: Ischaemic stroke
     Dosage: DAILY DOSE- 54?MOST RECENT DOSE : 30/APR/2022
     Route: 042
     Dates: start: 20220430, end: 20220430
  2. INSULIN NOS [Concomitant]
     Active Substance: INSULIN NOS
     Indication: Blood glucose decreased
     Dosage: IV DRIP
     Route: 041
     Dates: start: 20220502
  3. POTASSIUM CHLORIDE [Concomitant]
     Active Substance: POTASSIUM CHLORIDE
     Indication: Mineral supplementation
     Dosage: IV DRIP
     Route: 041
     Dates: start: 20220502
  4. MANNITOL [Concomitant]
     Active Substance: MANNITOL
     Indication: Drug therapy
     Dosage: IV DRIP
     Route: 041
     Dates: start: 20220502
  5. ASPIRIN [Concomitant]
     Active Substance: ASPIRIN
     Indication: Anticoagulant therapy
     Dosage: ENTERIC COATED TABLET
     Route: 048
     Dates: start: 20220501
  6. ATORVASTATIN CALCIUM [Concomitant]
     Active Substance: ATORVASTATIN CALCIUM
     Indication: Drug therapy
     Route: 048
     Dates: start: 20220430
  7. ALBUTEROL SULFATE [Concomitant]
     Active Substance: ALBUTEROL SULFATE
     Indication: Productive cough
     Dosage: A BOTTLE OF?ROUTE- ATOMIZATION INHALATION
     Dates: start: 20220502
  8. BUDESONIDE [Concomitant]
     Active Substance: BUDESONIDE
     Indication: Productive cough
     Dosage: ROUTE- ATOMIZATION INHALATION
     Route: 055
     Dates: start: 20220502
  9. FOLIC ACID [Concomitant]
     Active Substance: FOLIC ACID
     Indication: Productive cough
     Route: 048
     Dates: start: 20220302
  10. BUTYLPHTHALIDE [Concomitant]
     Active Substance: BUTYLPHTHALIDE
     Indication: Nervous system disorder prophylaxis
     Dosage: IV DRIP
     Route: 041
     Dates: start: 20220403
  11. CLOPIDOGREL BISULFATE [Concomitant]
     Active Substance: CLOPIDOGREL BISULFATE
     Indication: Anticoagulant therapy
     Route: 048
     Dates: start: 20220304
  12. PANTOPRAZOLE [Concomitant]
     Active Substance: PANTOPRAZOLE
     Indication: Prophylaxis
     Dosage: ENTERIC-COATED TABLET?ROUTE- NASAL FEEDING
     Route: 045
     Dates: start: 20220304
  13. GLUCONOLACTONE [Concomitant]
     Active Substance: GLUCONOLACTONE
     Indication: Prophylaxis
     Dosage: NASAL FEEDING
     Route: 045
     Dates: start: 20220313
  14. EDARAVONE [Concomitant]
     Active Substance: EDARAVONE
     Indication: Productive cough
     Dosage: SOLUTION FOR INJECTION
     Route: 042
     Dates: start: 20220430
  15. CEFAZOLIN SODIUM [Concomitant]
     Active Substance: CEFAZOLIN SODIUM
     Indication: Infection prophylaxis
     Dosage: IV DRIP
     Route: 041
     Dates: start: 20220504
  16. CEFAZOLIN SODIUM [Concomitant]
     Active Substance: CEFAZOLIN SODIUM
     Indication: Anti-infective therapy
  17. METOPROLOL TARTRATE [Concomitant]
     Active Substance: METOPROLOL TARTRATE
     Indication: Arrhythmia
     Dosage: 1 PIECE?ROUTE- NASAL FEEDING
     Dates: start: 20220506
  18. FUROSEMIDE [Concomitant]
     Active Substance: FUROSEMIDE
     Indication: Polyuria
     Dosage: NASAL FEEDING
     Dates: start: 20220523

REACTIONS (6)
  - Cerebral infarction [Not Recovered/Not Resolved]
  - Pneumonia aspiration [Unknown]
  - Brain herniation [Not Recovered/Not Resolved]
  - Hepatic failure [Not Recovered/Not Resolved]
  - Cerebral haemorrhage [Not Recovered/Not Resolved]
  - Hepatic function abnormal [Not Recovered/Not Resolved]

NARRATIVE: CASE EVENT DATE: 20220502
